FAERS Safety Report 10203752 (Version 3)
Quarter: 2015Q2

REPORT INFORMATION
  Report Type: Report from Study
  Country: DE (occurrence: DE)
  Receive Date: 20140529
  Receipt Date: 20150402
  Transmission Date: 20150821
  Serious: Yes (Hospitalization)
  Sender: FDA-Public Use
  Company Number: PHHO2011DE16372

PATIENT

DRUGS (3)
  1. PLACEBO [Suspect]
     Active Substance: UNSPECIFIED INGREDIENT
     Indication: TUBEROUS SCLEROSIS
     Dosage: CORE BLINDED PHASE
     Route: 048
     Dates: start: 20091117
  2. PLACEBO [Suspect]
     Active Substance: UNSPECIFIED INGREDIENT
     Route: 048
     Dates: start: 20110801, end: 20110916
  3. EVEROLIMUS [Suspect]
     Active Substance: EVEROLIMUS
     Indication: TUBEROUS SCLEROSIS
     Dosage: CROSSOVER-BLINDED PHASE
     Dates: start: 20110401, end: 20110916

REACTIONS (1)
  - Rhabdomyolysis [Recovered/Resolved]

NARRATIVE: CASE EVENT DATE: 20110916
